FAERS Safety Report 4706540-X (Version None)
Quarter: 2005Q2

REPORT INFORMATION
  Report Type: 
  Country: None (occurrence: None)
  Receive Date: 20050629
  Receipt Date: 20050502
  Transmission Date: 20051028
  Serious: No
  Sender: FDA-Public Use
  Company Number: 05P-163-0298957-00

PATIENT
  Age: 68 Year
  Sex: Female
  Weight: 52.1637 kg

DRUGS (12)
  1. HUMIRA [Suspect]
     Indication: RHEUMATOID ARTHRITIS
     Dosage: 40 MG, 1 IN 1 WK, 1 IN 2 WK, SUBCUTANEOUS
     Route: 058
     Dates: start: 20030101, end: 20040501
  2. HUMIRA [Suspect]
     Indication: RHEUMATOID ARTHRITIS
     Dosage: 40 MG, 1 IN 1 WK, 1 IN 2 WK, SUBCUTANEOUS
     Route: 058
     Dates: start: 20040901
  3. CELECOXIB [Concomitant]
  4. RISEDRONATE SODIUM [Concomitant]
  5. FOLIC ACID [Concomitant]
  6. MENEST [Concomitant]
  7. ESOMEPRAZOLE [Concomitant]
  8. MULTI-VITAMINS [Concomitant]
  9. ESTROGENS CONJUGATED [Concomitant]
  10. DICYCLOMINE [Concomitant]
  11. CALCIUM CITRATE [Concomitant]
  12. . [Concomitant]

REACTIONS (2)
  - LOWER RESPIRATORY TRACT INFECTION [None]
  - SINUSITIS [None]
